FAERS Safety Report 4272910-X (Version None)
Quarter: 2004Q1

REPORT INFORMATION
  Report Type: 
  Country: None (occurrence: None)
  Receive Date: 20040114
  Receipt Date: 20040106
  Transmission Date: 20041129
  Serious: Yes (Death)
  Sender: FDA-Public Use
  Company Number: GB-JNJFOC-20040100635

PATIENT
  Age: 78 Year
  Sex: Male

DRUGS (1)
  1. TOPAMAX [Suspect]
     Indication: DRUG USE FOR UNKNOWN INDICATION
     Dates: start: 20000712, end: 20000810

REACTIONS (3)
  - BRONCHOPNEUMONIA [None]
  - RENAL FAILURE CHRONIC [None]
  - SKIN CANCER [None]
